FAERS Safety Report 17327998 (Version 1)
Quarter: 2020Q1

REPORT INFORMATION
  Report Type: Spontaneous
  Country: NL (occurrence: US)
  Receive Date: 20200127
  Receipt Date: 20200127
  Transmission Date: 20200409
  Serious: Yes (Other)
  Sender: FDA-Public Use
  Company Number: NL-MYLANLABS-2020M1007966

PATIENT
  Age: 30 Year
  Sex: Female

DRUGS (3)
  1. BUPRENORPHINE. [Suspect]
     Active Substance: BUPRENORPHINE
     Dosage: UNK, REDUCED DOSE
     Route: 065
     Dates: start: 2011, end: 2011
  2. BUPRENORPHINE. [Suspect]
     Active Substance: BUPRENORPHINE
     Dosage: UNK UNK, QD
     Route: 065
     Dates: start: 2011
  3. BUPRENORPHINE. [Suspect]
     Active Substance: BUPRENORPHINE
     Indication: PRODUCT USED FOR UNKNOWN INDICATION
     Dosage: 24  MILLIGRAM, UNKNOWN
     Route: 065
     Dates: start: 200704, end: 2011

REACTIONS (4)
  - Maternal exposure during pregnancy [Recovered/Resolved]
  - Drug dependence [Unknown]
  - Intentional underdose [Recovered/Resolved]
  - Premature rupture of membranes [Recovered/Resolved]

NARRATIVE: CASE EVENT DATE: 2011
